FAERS Safety Report 5101194-5 (Version None)
Quarter: 2006Q3

REPORT INFORMATION
  Report Type: 
  Country: None (occurrence: None)
  Receive Date: 20060911
  Receipt Date: 20060829
  Transmission Date: 20061208
  Serious: Yes (Hospitalization)
  Sender: FDA-Public Use
  Company Number: PHEH2006US11133

PATIENT

DRUGS (1)
  1. EXJADE [Suspect]

REACTIONS (2)
  - HEPATIC FAILURE [None]
  - RENAL FAILURE [None]
